FAERS Safety Report 17555659 (Version 1)
Quarter: 2020Q1

REPORT INFORMATION
  Report Type: Spontaneous
  Country: US (occurrence: US)
  Receive Date: 20200310
  Receipt Date: 20200310
  Transmission Date: 20200409
  Serious: Yes (Hospitalization)
  Sender: FDA-Public Use
  Company Number: None

PATIENT
  Age: 79 Year
  Sex: Male
  Weight: 63 kg

DRUGS (1)
  1. GABAPENTIN (GABAPENTIN 100MG CAP) [Suspect]
     Active Substance: GABAPENTIN
     Route: 048
     Dates: start: 20200207, end: 20200209

REACTIONS (6)
  - Myoclonus [None]
  - Dizziness [None]
  - Confusional state [None]
  - Speech disorder [None]
  - Hypercalcaemia [None]
  - Gait disturbance [None]

NARRATIVE: CASE EVENT DATE: 20200209
